FAERS Safety Report 9460031 (Version 1)
Quarter: 2013Q3

REPORT INFORMATION
  Report Type: Spontaneous
  Country: US (occurrence: None)
  Receive Date: 20130814
  Receipt Date: 20130814
  Transmission Date: 20140515
  Serious: Yes (Death, Hospitalization)
  Sender: FDA-Public Use
  Company Number: None

PATIENT
  Age: 56 Year
  Sex: Female

DRUGS (12)
  1. LETAIRIS [Suspect]
     Route: 048
     Dates: start: 20121107, end: 20121218
  2. LETAIRIS [Suspect]
     Route: 048
     Dates: start: 20121219, end: 20130731
  3. BLOOD SUGAR TEST ( ONE TOUCH ULTRA TEST) MISC STRIPS [Concomitant]
  4. LEVOTHYROXINE ( LEVOTHROID) [Concomitant]
  5. SIMVASTATIN [Concomitant]
  6. SULFAMETHOXAZOLE-TRIMETHOPRIM [Concomitant]
  7. FUROSEMIDE [Concomitant]
  8. CARVEDILOL [Concomitant]
  9. OMEPRAZOLE [Concomitant]
  10. PREDNISONE [Concomitant]
  11. INSULIN NPH HUMAN ( NOVOLIN N) [Concomitant]
  12. INSULIN REGULAR HUMAN ( NOVOLIN R) [Concomitant]

REACTIONS (6)
  - Septic shock [None]
  - Pneumonia staphylococcal [None]
  - Cardiogenic shock [None]
  - Peritonitis bacterial [None]
  - Systemic candida [None]
  - Clostridium difficile infection [None]
